FAERS Safety Report 17179504 (Version 4)
Quarter: 2020Q1

REPORT INFORMATION
  Report Type: Spontaneous
  Country: EG (occurrence: EG)
  Receive Date: 20191219
  Receipt Date: 20200219
  Transmission Date: 20200409
  Serious: Yes (Hospitalization, Other)
  Sender: FDA-Public Use
  Company Number: EG-SA-2019SA347423

PATIENT
  Sex: Male
  Weight: 5 kg

DRUGS (1)
  1. MYOZYME [Suspect]
     Active Substance: ALGLUCOSIDASE ALFA
     Dosage: 40 MG/KG, QOW
     Route: 065

REACTIONS (7)
  - Cardiac failure [Not Recovered/Not Resolved]
  - Lower respiratory tract infection [Not Recovered/Not Resolved]
  - Tracheostomy [Unknown]
  - Respiratory muscle weakness [Not Recovered/Not Resolved]
  - Head lag [Not Recovered/Not Resolved]
  - Off label use [Unknown]
  - Hypotonia [Not Recovered/Not Resolved]
